FAERS Safety Report 9231657 (Version 1)
Quarter: 2013Q2

REPORT INFORMATION
  Report Type: Report from Study
  Country: US (occurrence: US)
  Receive Date: 20130415
  Receipt Date: 20130415
  Transmission Date: 20140414
  Serious: Yes (Hospitalization)
  Sender: FDA-Public Use
  Company Number: US-ACTELION-A-NJ2013-81763

PATIENT
  Age: 33 Year
  Sex: Female

DRUGS (3)
  1. VELETRI [Suspect]
     Indication: PULMONARY ARTERIAL HYPERTENSION
     Dosage: 40 NG/KG, PER MIN
     Route: 041
     Dates: start: 20120517
  2. VELETRI [Suspect]
     Dosage: 34 NG/KG, PER MIN
     Route: 041
  3. LETAIRIS [Concomitant]

REACTIONS (2)
  - Systemic lupus erythematosus [Unknown]
  - Pain [Unknown]
